FAERS Safety Report 20804183 (Version 2)
Quarter: 2022Q2

REPORT INFORMATION
  Report Type: Spontaneous
  Country: PL (occurrence: PL)
  Receive Date: 20220509
  Receipt Date: 20220526
  Transmission Date: 20220720
  Serious: Yes (Hospitalization, Other)
  Sender: FDA-Public Use
  Company Number: PL-CELGENE-POL-20211105791

PATIENT
  Age: 71 Year
  Sex: Male

DRUGS (45)
  1. AZACITIDINE [Suspect]
     Active Substance: AZACITIDINE
     Indication: Acute myeloid leukaemia
     Route: 058
     Dates: start: 20210726, end: 20211110
  2. PEVONEDISTAT [Suspect]
     Active Substance: PEVONEDISTAT
     Indication: Acute myeloid leukaemia
     Dosage: FREQUENCY TEXT: NOT PROVIDED
     Route: 065
     Dates: start: 20210726, end: 20211110
  3. VENETOCLAX [Suspect]
     Active Substance: VENETOCLAX
     Indication: Acute myeloid leukaemia
     Dosage: FREQUENCY TEXT: NOT PROVIDED
     Route: 048
     Dates: start: 20210726
  4. VENETOCLAX [Suspect]
     Active Substance: VENETOCLAX
     Dosage: FREQUENCY TEXT: NOT PROVIDED
     Route: 048
     Dates: start: 20210727
  5. VENETOCLAX [Suspect]
     Active Substance: VENETOCLAX
     Dosage: FREQUENCY TEXT: NOT PROVIDED
     Route: 048
     Dates: start: 20210728, end: 20210812
  6. VENETOCLAX [Suspect]
     Active Substance: VENETOCLAX
     Route: 048
     Dates: start: 20210813, end: 20210907
  7. VENETOCLAX [Suspect]
     Active Substance: VENETOCLAX
     Route: 048
     Dates: start: 20210908
  8. VENETOCLAX [Suspect]
     Active Substance: VENETOCLAX
     Route: 048
     Dates: start: 20211018
  9. VENETOCLAX [Suspect]
     Active Substance: VENETOCLAX
     Route: 048
     Dates: start: 20211027, end: 20211110
  10. ENTECAVIR [Concomitant]
     Active Substance: ENTECAVIR
     Dates: start: 20210805
  11. ACYCLOVIR [Concomitant]
     Active Substance: ACYCLOVIR
     Dates: start: 20210727
  12. SMOFKABIVEN PERIFER [Concomitant]
     Dosage: FREQUENCY TEXT: NOT PROVIDED
     Route: 065
     Dates: start: 2021, end: 20211123
  13. SMOFKABIVEN PERIFER [Concomitant]
     Indication: Malnutrition
  14. ALLOPURINOL [Concomitant]
     Active Substance: ALLOPURINOL
     Dosage: FREQUENCY TEXT: NOT PROVIDED
     Route: 065
     Dates: start: 20210805
  15. ALLOPURINOL [Concomitant]
     Active Substance: ALLOPURINOL
     Indication: Tumour lysis syndrome
  16. ALLOPURINOL [Concomitant]
     Active Substance: ALLOPURINOL
     Indication: Prophylaxis
  17. ONDANSETRON [Concomitant]
     Active Substance: ONDANSETRON
     Route: 065
     Dates: start: 20211018, end: 20211026
  18. ONDANSETRON [Concomitant]
     Active Substance: ONDANSETRON
     Indication: Product used for unknown indication
  19. LEVOFLOXACIN [Concomitant]
     Active Substance: LEVOFLOXACIN
     Route: 065
     Dates: start: 20211017, end: 20211026
  20. LEVOFLOXACIN [Concomitant]
     Active Substance: LEVOFLOXACIN
     Indication: Product used for unknown indication
  21. POTASSIUM BICARBONATE\POTASSIUM CITRATE [Concomitant]
     Active Substance: POTASSIUM BICARBONATE\POTASSIUM CITRATE
     Route: 065
     Dates: start: 20211017
  22. POTASSIUM BICARBONATE\POTASSIUM CITRATE [Concomitant]
     Active Substance: POTASSIUM BICARBONATE\POTASSIUM CITRATE
     Indication: Product used for unknown indication
  23. MAGNE B6 [Concomitant]
     Active Substance: MAGNESIUM\PYRIDOXINE
     Dates: start: 20211017
  24. DICLOFENAC SODIUM [Concomitant]
     Active Substance: DICLOFENAC SODIUM
     Route: 065
     Dates: start: 20211017, end: 20211026
  25. DICLOFENAC SODIUM [Concomitant]
     Active Substance: DICLOFENAC SODIUM
     Indication: Product used for unknown indication
  26. FLUCONAZOLE [Concomitant]
     Active Substance: FLUCONAZOLE
     Dosage: FREQUENCY TEXT: NOT PROVIDED
     Route: 065
     Dates: start: 20210719
  27. FLUCONAZOLE [Concomitant]
     Active Substance: FLUCONAZOLE
     Indication: Infection prophylaxis
  28. ALFACALCIDOL [Concomitant]
     Active Substance: ALFACALCIDOL
     Dates: start: 20210728
  29. ALFACALCIDOL [Concomitant]
     Active Substance: ALFACALCIDOL
     Indication: Supplementation therapy
     Route: 065
     Dates: start: 20210813
  30. ALFACALCIDOL [Concomitant]
     Active Substance: ALFACALCIDOL
     Dosage: FREQUENCY TEXT: NOT PROVIDED
     Route: 065
     Dates: start: 20210813
  31. ENOXAPARIN SODIUM [Concomitant]
     Active Substance: ENOXAPARIN SODIUM
     Dosage: FREQUENCY TEXT: NOT PROVIDED
     Route: 065
     Dates: start: 20210826
  32. ENOXAPARIN SODIUM [Concomitant]
     Active Substance: ENOXAPARIN SODIUM
     Indication: Prophylaxis
  33. TORSEMIDE [Concomitant]
     Active Substance: TORSEMIDE
     Route: 065
     Dates: start: 20210813
  34. TORSEMIDE [Concomitant]
     Active Substance: TORSEMIDE
     Indication: Prophylaxis
  35. ZOPICLONE [Concomitant]
     Active Substance: ZOPICLONE
     Dosage: FREQUENCY TEXT: NOT PROVIDED
     Route: 065
     Dates: start: 20210906
  36. ZOPICLONE [Concomitant]
     Active Substance: ZOPICLONE
     Indication: Insomnia
  37. ACYCLOVIR [Concomitant]
     Active Substance: ACYCLOVIR
     Indication: Infection prophylaxis
     Route: 065
     Dates: start: 20210727
  38. MAGNE B6 [Concomitant]
     Active Substance: MAGNESIUM\PYRIDOXINE
     Indication: Product used for unknown indication
     Route: 065
     Dates: start: 20211017, end: 20211026
  39. ENTECAVIR [Concomitant]
     Active Substance: ENTECAVIR
     Indication: Prophylaxis
     Route: 065
     Dates: start: 20210805
  40. PANTOPRAZOLE [Concomitant]
     Active Substance: PANTOPRAZOLE
     Indication: Gastrooesophageal reflux disease
     Dosage: FREQUENCY TEXT: NOT PROVIDED
     Route: 065
     Dates: start: 20210707
  41. HYDROXYUREA [Concomitant]
     Active Substance: HYDROXYUREA
     Indication: Acute myeloid leukaemia
     Dosage: FREQUENCY TEXT: NOT PROVIDED
     Route: 065
     Dates: start: 20210719
  42. NADROPARIN CALCIUM [Concomitant]
     Active Substance: NADROPARIN CALCIUM
     Indication: Prophylaxis
     Dosage: FREQUENCY TEXT: NOT PROVIDED
     Route: 065
     Dates: start: 20210723
  43. TRAZODONE HYDROCHLORIDE [Concomitant]
     Active Substance: TRAZODONE HYDROCHLORIDE
     Indication: Sleep disorder
     Dosage: FREQUENCY TEXT: NOT PROVIDED
     Route: 065
     Dates: start: 20210824
  44. VORICONAZOLE [Concomitant]
     Active Substance: VORICONAZOLE
     Indication: Infection prophylaxis
     Dosage: FREQUENCY TEXT: NOT PROVIDED
     Route: 065
     Dates: start: 20210813
  45. ENOXAPARIN SODIUM [Concomitant]
     Active Substance: ENOXAPARIN SODIUM
     Indication: Product used for unknown indication
     Dosage: FREQUENCY TEXT: NOT PROVIDED
     Route: 065
     Dates: start: 20210826

REACTIONS (1)
  - Clostridium difficile colitis [Recovered/Resolved]

NARRATIVE: CASE EVENT DATE: 20211110
